FAERS Safety Report 9156730 (Version 1)
Quarter: 2013Q1

REPORT INFORMATION
  Report Type: Spontaneous
  Country: US (occurrence: None)
  Receive Date: 20130211
  Receipt Date: 20130211
  Transmission Date: 20140127
  Serious: Yes (Life-Threatening, Other)
  Sender: FDA-Public Use
  Company Number: 2013P1001945

PATIENT
  Age: 35 Year
  Sex: Male

DRUGS (1)
  1. ZANTAC [Suspect]
     Indication: ABDOMINAL PAIN UPPER
     Route: 042

REACTIONS (5)
  - Anaphylactic reaction [None]
  - Urticaria [None]
  - Hypovolaemia [None]
  - Dyspnoea [None]
  - Product quality issue [None]
